FAERS Safety Report 7427358-3 (Version None)
Quarter: 2011Q2

REPORT INFORMATION
  Report Type: 
  Country: None (occurrence: None)
  Receive Date: 20110420
  Receipt Date: 20110415
  Transmission Date: 20111010
  Serious: Yes (Life-Threatening, Hospitalization, Other)
  Sender: FDA-Public Use
  Company Number: BR-ELI_LILLY_AND_COMPANY-BR201103000573

PATIENT
  Sex: Female
  Weight: 70 kg

DRUGS (8)
  1. HUMULIN N [Suspect]
     Indication: TYPE 2 DIABETES MELLITUS
     Dosage: 40 IU, EACH MORNING
     Route: 065
     Dates: start: 20090101
  2. HUMULIN N [Suspect]
     Dosage: 30 IU, EACH EVENING
     Route: 065
     Dates: start: 20090101
  3. METFORMIN HCL [Concomitant]
     Indication: DIABETES MELLITUS
     Dosage: 850 MG, 2/D
     Route: 048
  4. LOSARTAN [Concomitant]
     Indication: HYPERTENSION
     Dosage: 25 MG, DAILY (1/D)
     Route: 048
  5. SINVASTATINA [Concomitant]
     Indication: BLOOD CHOLESTEROL
     Dosage: UNK, OTHER
     Route: 065
  6. ATENOLOL [Concomitant]
     Indication: HYPERTENSION
     Dosage: 50 MG, DAILY (1/D)
     Route: 048
  7. ASPIRIN [Concomitant]
     Dosage: UNK, DAILY (1/D)
     Route: 048
  8. FLUOXETINA [Concomitant]
     Indication: DEPRESSION
     Dosage: UNK, UNKNOWN
     Route: 065

REACTIONS (8)
  - ANAPHYLACTIC SHOCK [None]
  - FORMICATION [None]
  - DEFORMITY [None]
  - BLOOD PRESSURE DECREASED [None]
  - SYNCOPE [None]
  - DYSPNOEA [None]
  - SWELLING [None]
  - RASH [None]
